FAERS Safety Report 21949786 (Version 9)
Quarter: 2023Q2

REPORT INFORMATION
  Report Type: Spontaneous
  Country: US (occurrence: US)
  Receive Date: 20230203
  Receipt Date: 20230413
  Transmission Date: 20230721
  Serious: No
  Sender: FDA-Public Use
  Company Number: US-UNITED THERAPEUTICS-UNT-2023-002777

PATIENT
  Age: 60 Year
  Sex: Male
  Weight: 90.703 kg

DRUGS (10)
  1. REMODULIN [Suspect]
     Active Substance: TREPROSTINIL
     Indication: Pulmonary arterial hypertension
     Dosage: 0.011 ?G/KG, (SELF-FILL CASSETTE WITH 3 ML. RATE OF 42 MCL PER HOUR), CONTINUING
     Route: 058
     Dates: start: 202301
  2. REMODULIN [Suspect]
     Active Substance: TREPROSTINIL
     Dosage: UNK (SELF-FILLED CASSETTE WITH 2 ML; RATE OF 21 MCL/HOUR), CONTINUING
     Route: 058
  3. REMODULIN [Suspect]
     Active Substance: TREPROSTINIL
     Dosage: UNK, CONTINUING
     Route: 058
     Dates: start: 20230116
  4. REMODULIN [Suspect]
     Active Substance: TREPROSTINIL
     Indication: Pulmonary arterial hypertension
     Dosage: 0.011 ?G/KG (SELF-FILLED WITH 2 ML/CASSETTE AT PUMP RATE 21 MCL/HOUR), CONTINUING
     Route: 058
  5. REMODULIN [Suspect]
     Active Substance: TREPROSTINIL
     Dosage: UNK, CONTINUING (SELF-FILLED WITH 3 ML/CASSETTE AT PUMP RATE 38 MCL/HOUR)
     Route: 058
  6. REMODULIN [Suspect]
     Active Substance: TREPROSTINIL
     Dosage: 0.020 ?G/KG (SELF-FILLED CASSETTE WITH 2 ML AT A RATE OF 21 MCL/HOUR), CONTINUING
     Route: 058
  7. REMODULIN [Suspect]
     Active Substance: TREPROSTINIL
     Dosage: UNK, CONTINUING (SELF-FILLED WITH 3 ML/CASSETTE AT A REMUNITY PUMP RATE 40 MCL/HOUR)
     Route: 058
  8. TRACLEER [Concomitant]
     Active Substance: BOSENTAN
     Indication: Product used for unknown indication
     Dosage: UNK
     Route: 065
  9. ADEMPAS [Concomitant]
     Active Substance: RIOCIGUAT
     Indication: Product used for unknown indication
     Dosage: UNK
     Route: 065
  10. UPTRAVI [Concomitant]
     Active Substance: SELEXIPAG
     Indication: Product used for unknown indication
     Dosage: UNK
     Route: 065

REACTIONS (23)
  - Pain [Unknown]
  - Infusion site pain [Unknown]
  - Device power source issue [Unknown]
  - Device power source issue [Unknown]
  - Device power source issue [Unknown]
  - Device failure [Unknown]
  - Device failure [Unknown]
  - Infusion site pruritus [Unknown]
  - Hypotension [Unknown]
  - Headache [Unknown]
  - Pain in jaw [Not Recovered/Not Resolved]
  - Oedema peripheral [Unknown]
  - Device failure [Recovered/Resolved]
  - Device infusion issue [Recovered/Resolved]
  - Infusion site irritation [Unknown]
  - Infusion site inflammation [Unknown]
  - Anxiety [Unknown]
  - Device information output issue [Unknown]
  - Pain in extremity [Unknown]
  - Infusion site erythema [Unknown]
  - Infusion site discomfort [Unknown]
  - Scar [Unknown]
  - Road traffic accident [Unknown]

NARRATIVE: CASE EVENT DATE: 20230101
